FAERS Safety Report 23511230 (Version 6)
Quarter: 2024Q2

REPORT INFORMATION
  Report Type: Spontaneous
  Country: US (occurrence: US)
  Receive Date: 20240212
  Receipt Date: 20240626
  Transmission Date: 20240716
  Serious: Yes (Other)
  Sender: FDA-Public Use
  Company Number: US-BRISTOL-MYERS SQUIBB COMPANY-2024-017990

PATIENT
  Age: 77 Year
  Sex: Female

DRUGS (3)
  1. POMALYST [Suspect]
     Active Substance: POMALIDOMIDE
     Indication: Plasma cell myeloma
     Dosage: TAKE 1 CAPSULE (2 MG  TOTAL) BY MOUTH DAILY ON DAYS 1-21, THEN RESUME AFTER 7 DAYS OFF
     Route: 048
  2. POMALYST [Suspect]
     Active Substance: POMALIDOMIDE
     Indication: Plasma cell myeloma
     Dosage: TAKE 1 CAPSULE (2MG) BY MOUTH DAILY ON DAYS 1-21, THEN RESUME AFTER 7 DAYS OFF
     Route: 048
  3. POMALYST [Suspect]
     Active Substance: POMALIDOMIDE
     Dosage: TAKE 1 CAPSULE (2MG) BY MOUTH DAILY ON DAYS 1-21, THEN RESUME AFTER 7 DAYS OFF
     Route: 048

REACTIONS (4)
  - Rash [Recovering/Resolving]
  - Muscle spasms [Recovered/Resolved]
  - Diverticulitis [Recovered/Resolved]
  - Rash pruritic [Not Recovered/Not Resolved]
